FAERS Safety Report 10037992 (Version 1)
Quarter: 2014Q1

REPORT INFORMATION
  Report Type: Spontaneous
  Country: US (occurrence: None)
  Receive Date: 20140306
  Receipt Date: 20140306
  Transmission Date: 20141002
  Serious: Yes (Hospitalization)
  Sender: FDA-Public Use
  Company Number: 163-21880-13082693

PATIENT
  Age: 60 Year
  Sex: Female

DRUGS (8)
  1. REVLIMID (LENALIDOMIDE) (5 MILLIGRAM, CAPSULES) [Suspect]
     Indication: PLASMA CELL MYELOMA
     Dosage: 5 MG, 1 IN 1 D, PO 08/ 2012 - UNKNOWN THERAPY DATES
     Route: 048
     Dates: start: 201208
  2. FOLIC ACID (FOLIC ACID) [Concomitant]
  3. EPOGEN (EPOETIN ALFA) [Concomitant]
  4. LOVENOX (HEPARIN-FRACTION , SODIUM SALT) [Concomitant]
  5. DEXAMETHASONE [Concomitant]
  6. ACYCLOVIR (ACICLOVIR) (ACICLOVIR) [Concomitant]
  7. RANITIDINE HCL (RANITIDINE HYDROCHLORIDE) [Concomitant]
  8. ALLOPURINOL [Concomitant]

REACTIONS (1)
  - Plasmacytoma [None]
